FAERS Safety Report 7727212-3 (Version None)
Quarter: 2011Q3

REPORT INFORMATION
  Report Type: 
  Country: None (occurrence: None)
  Receive Date: 20110902
  Receipt Date: 20110831
  Transmission Date: 20111222
  Serious: No
  Sender: FDA-Public Use
  Company Number: US-TEVA-298987USA

PATIENT
  Age: 17 Year
  Sex: Female
  Weight: 61.29 kg

DRUGS (3)
  1. PLAN B ONE-STEP [Suspect]
     Indication: POST COITAL CONTRACEPTION
     Dosage: 1.5 MILLIGRAM;
     Route: 048
     Dates: start: 20110831, end: 20110831
  2. BENADRYL [Concomitant]
     Indication: INSOMNIA
  3. ALBUTEROL SULFATE AUTOHALER [Concomitant]
     Indication: ASTHMA

REACTIONS (6)
  - FATIGUE [None]
  - DIZZINESS [None]
  - HEADACHE [None]
  - ABDOMINAL PAIN LOWER [None]
  - DYSPNOEA [None]
  - NAUSEA [None]
